FAERS Safety Report 20230446 (Version 4)
Quarter: 2024Q3

REPORT INFORMATION
  Report Type: Spontaneous
  Country: CA (occurrence: CA)
  Receive Date: 20211227
  Receipt Date: 20240802
  Transmission Date: 20241017
  Serious: No
  Sender: CELLTRION
  Company Number: CA-CELLTRION INC.-2021CA017671

PATIENT

DRUGS (19)
  1. TRUXIMA [Suspect]
     Active Substance: RITUXIMAB-ABBS
     Indication: Ankylosing spondylitis
     Dosage: 1000 MG, INFUSION #1
     Route: 042
     Dates: start: 20211216, end: 20211216
  2. TRUXIMA [Suspect]
     Active Substance: RITUXIMAB-ABBS
     Indication: Multiple sclerosis
     Dosage: 1000 MG, INFUSION #3
     Route: 042
     Dates: start: 20211216
  3. TRUXIMA [Suspect]
     Active Substance: RITUXIMAB-ABBS
     Dosage: 1000 MG, INFUSION#5
     Route: 042
     Dates: start: 20211216
  4. TRUXIMA [Suspect]
     Active Substance: RITUXIMAB-ABBS
     Dosage: 1000 MG, INFUSION#6
     Route: 042
     Dates: start: 20211216
  5. TRUXIMA [Suspect]
     Active Substance: RITUXIMAB-ABBS
     Dosage: 1000 MG, INFUSION#7
     Route: 042
     Dates: start: 20211216
  6. TRUXIMA [Suspect]
     Active Substance: RITUXIMAB-ABBS
     Dosage: 1000 MG, INFUSION#8
     Route: 042
     Dates: start: 20211216
  7. TRUXIMA [Suspect]
     Active Substance: RITUXIMAB-ABBS
     Dosage: 1000 MG, INFUSION#9
     Route: 042
     Dates: start: 20211216
  8. TRUXIMA [Suspect]
     Active Substance: RITUXIMAB-ABBS
     Dosage: 1000 MG INFUSION #10
     Route: 042
     Dates: start: 20211216
  9. TYLENOL [Concomitant]
     Active Substance: ACETAMINOPHEN
     Indication: Premedication
     Dosage: UNK
  10. TYLENOL [Concomitant]
     Active Substance: ACETAMINOPHEN
     Dosage: 650 MG
     Route: 048
  11. SOLU-MEDROL [Concomitant]
     Active Substance: METHYLPREDNISOLONE SODIUM SUCCINATE
     Indication: Premedication
     Dosage: UNK
  12. SOLU-MEDROL [Concomitant]
     Active Substance: METHYLPREDNISOLONE SODIUM SUCCINATE
     Dosage: 100 MG
     Route: 042
  13. BENADRYL [Concomitant]
     Active Substance: DIPHENHYDRAMINE HYDROCHLORIDE
     Indication: Premedication
     Dosage: UNK
  14. BENADRYL [Concomitant]
     Active Substance: DIPHENHYDRAMINE HYDROCHLORIDE
     Dosage: 50 MG
     Route: 048
  15. DIPHENHYDRAMINE HYDROCHLORIDE [Concomitant]
     Active Substance: DIPHENHYDRAMINE HYDROCHLORIDE
     Indication: Premedication
     Dosage: 50 MG
     Route: 042
  16. ACETAMINOPHEN [Concomitant]
     Active Substance: ACETAMINOPHEN
     Indication: Premedication
     Dosage: 650 MG
     Route: 048
  17. ACETAMINOPHEN [Concomitant]
     Active Substance: ACETAMINOPHEN
     Dosage: 650 MG
  18. METHYLPREDNISOLONE [Concomitant]
     Active Substance: METHYLPREDNISOLONE
     Indication: Premedication
     Dosage: 100 MG
     Route: 042
  19. DIPHENHYDRAMINE [Concomitant]
     Active Substance: DIPHENHYDRAMINE
     Indication: Premedication
     Dosage: 50 MG
     Route: 042

REACTIONS (21)
  - Venous occlusion [Unknown]
  - Ear pruritus [Recovered/Resolved]
  - Ear pruritus [Recovered/Resolved]
  - Ear pruritus [Recovered/Resolved]
  - Ear pruritus [Recovered/Resolved]
  - Dry throat [Recovered/Resolved]
  - Injection site haemorrhage [Unknown]
  - Throat irritation [Recovered/Resolved]
  - Throat irritation [Recovered/Resolved]
  - Throat irritation [Recovered/Resolved]
  - Throat irritation [Recovered/Resolved]
  - Pruritus [Recovered/Resolved]
  - Nausea [Recovered/Resolved]
  - Fatigue [Unknown]
  - Infusion related reaction [Recovered/Resolved]
  - Fatigue [Unknown]
  - Pain [Unknown]
  - Adverse drug reaction [Recovered/Resolved]
  - Intentional product use issue [Unknown]
  - Device infusion issue [Unknown]
  - Medication error [Unknown]

NARRATIVE: CASE EVENT DATE: 20211216
